FAERS Safety Report 14165605 (Version 1)
Quarter: 2017Q4

REPORT INFORMATION
  Report Type: Spontaneous
  Country: IE (occurrence: IE)
  Receive Date: 20171107
  Receipt Date: 20171107
  Transmission Date: 20180321
  Serious: Yes (Congenital Anomaly, Other)
  Sender: FDA-Public Use
  Company Number: IE-JNJFOC-20171101967

PATIENT

DRUGS (1)
  1. TOPIRAMATE. [Suspect]
     Active Substance: TOPIRAMATE
     Indication: PRODUCT USED FOR UNKNOWN INDICATION
     Dosage: PARENT DOSING
     Route: 064

REACTIONS (3)
  - Cleft lip [Unknown]
  - Foetal exposure during pregnancy [Recovered/Resolved]
  - Cleft palate [Unknown]
